FAERS Safety Report 5887432-X (Version None)
Quarter: 2008Q3

REPORT INFORMATION
  Report Type: 
  Country: None (occurrence: None)
  Receive Date: 20080918
  Receipt Date: 20080912
  Transmission Date: 20090109
  Serious: Yes (Other)
  Sender: FDA-Public Use
  Company Number: DE-WYE-G02156108

PATIENT
  Sex: Male
  Weight: 59 kg

DRUGS (2)
  1. TREVILOR RETARD [Suspect]
     Dosage: 5 CAPSULES (AMOUNT 375 MG)
     Route: 048
     Dates: start: 20080911, end: 20080911
  2. ALCOHOL [Suspect]
     Dosage: 10 BOTTLES OF BEER
     Route: 048
     Dates: start: 20080911, end: 20080911

REACTIONS (1)
  - DRUG ABUSE [None]
